FAERS Safety Report 5781686-6 (Version None)
Quarter: 2008Q2

REPORT INFORMATION
  Report Type: 
  Country: None (occurrence: None)
  Receive Date: 20080623
  Receipt Date: 20070501
  Transmission Date: 20081010
  Serious: No
  Sender: FDA-Public Use
  Company Number: US-ASTRAZENECA-2007UW09230

PATIENT
  Age: 35 Year
  Sex: Female
  Weight: 68 kg

DRUGS (5)
  1. RHINOCORT [Suspect]
     Indication: MULTIPLE ALLERGIES
     Route: 045
     Dates: start: 20070430
  2. RHINOCORT [Suspect]
     Indication: SINUSITIS
     Route: 045
     Dates: start: 20070430
  3. ALLEGRA [Concomitant]
     Dates: start: 20070430
  4. VICODIN TUSS [Concomitant]
     Dates: start: 20070430
  5. COUGH SYRUP [Concomitant]
     Dates: start: 20070430

REACTIONS (1)
  - HEADACHE [None]
